FAERS Safety Report 10360015 (Version 1)
Quarter: 2014Q3

REPORT INFORMATION
  Report Type: Spontaneous
  Country: JP (occurrence: None)
  Receive Date: 20140730
  Receipt Date: 20140730
  Transmission Date: 20150326
  Serious: Yes (Hospitalization, Other)
  Sender: FDA-Public Use
  Company Number: 2009JP001341

PATIENT
  Age: 21 Year
  Sex: Female
  Weight: 43 kg

DRUGS (21)
  1. TIMOPTOL-XE (TIMOLOL MALEATE) [Concomitant]
  2. MELBIN (METFORMIN HYDROCHLORIDE) [Concomitant]
  3. SOLU_MEDROL (METHYLPREDNISOLONE SODIUM SUCCINATE) [Concomitant]
  4. TACROLIMUS CAPSULES (TACROLIMUS) CAPSULE [Suspect]
     Active Substance: TACROLIMUS
     Indication: LUPUS NEPHRITIS
     Route: 048
     Dates: start: 20080613, end: 20080624
  5. BASEN /01290601/(VOGLIBOSE) [Concomitant]
  6. MEDROL [Suspect]
     Active Substance: METHYLPREDNISOLONE
     Indication: LUPUS NEPHRITIS
     Route: 048
     Dates: end: 20080613
  7. PARIET (SODIUM RABEPRAZOLE) [Concomitant]
  8. SANPILO (PILOCARPINE HYDROCHLORIDE) [Concomitant]
  9. AZOPT (BRINZOLAMIDE) [Concomitant]
  10. ALFAROL [Concomitant]
     Active Substance: ALFACALCIDOL
  11. BAKTAR (SULFAMETHOXAZOLE, TRIMETHOPRIM) TABLET [Concomitant]
     Active Substance: SULFAMETHOXAZOLE\TRIMETHOPRIM
  12. OMEPRAL (OMEPRAZOLE) [Concomitant]
     Active Substance: OMEPRAZOLE
  13. TRUSOPT (DORZOLAMIDE HYDROCHLORIDE) [Concomitant]
  14. ACTONEL (RISEDRONATE SODIUM) [Concomitant]
  15. PREDNONINE (PREDNISOLONE) [Concomitant]
  16. ZETIA [Concomitant]
     Active Substance: EZETIMIBE
  17. ASPARA-CA (ASPARTATE CALCIUM) [Concomitant]
  18. DIAMOX /00016901/(ACETAZOLAMIDE) [Concomitant]
  19. XALATAN [Concomitant]
     Active Substance: LATANOPROST
  20. SOFT SANTEAR (POTASSIUM CHLORIDE, SODIUM CHLORIDE) [Concomitant]
  21. METGLUCO [Concomitant]
     Active Substance: METFORMIN HYDROCHLORIDE

REACTIONS (4)
  - Urticaria [None]
  - Nausea [None]
  - Enteritis infectious [None]
  - Glucose tolerance impaired [None]

NARRATIVE: CASE EVENT DATE: 20080822
